FAERS Safety Report 13714558 (Version 2)
Quarter: 2017Q3

REPORT INFORMATION
  Report Type: Report from Study
  Country: DE (occurrence: DE)
  Receive Date: 20170704
  Receipt Date: 20170712
  Transmission Date: 20171127
  Serious: Yes (Death, Hospitalization, Other)
  Sender: FDA-Public Use
  Company Number: DE-BRISTOL-MYERS SQUIBB COMPANY-BMS-2017-058520

PATIENT
  Age: 86 Year
  Sex: Female

DRUGS (1)
  1. APIXABAN [Suspect]
     Active Substance: APIXABAN
     Indication: CEREBROVASCULAR ACCIDENT PROPHYLAXIS
     Dosage: 2.5 MG, BID
     Route: 065
     Dates: start: 20150315

REACTIONS (5)
  - Transfusion [Unknown]
  - Gastrointestinal ulcer haemorrhage [Fatal]
  - Acute kidney injury [Fatal]
  - Radicular pain [Unknown]
  - Overdose [Unknown]

NARRATIVE: CASE EVENT DATE: 20170622
